FAERS Safety Report 17062316 (Version 12)
Quarter: 2022Q4

REPORT INFORMATION
  Report Type: Report from Study
  Country: JP (occurrence: JP)
  Receive Date: 20191122
  Receipt Date: 20221006
  Transmission Date: 20230113
  Serious: Yes (Death, Life-Threatening, Hospitalization, Other)
  Sender: FDA-Public Use
  Company Number: JP-BRISTOL-MYERS SQUIBB COMPANY-BMS-2019-092524

PATIENT
  Age: 60 Year
  Sex: Male
  Weight: 57.6 kg

DRUGS (12)
  1. IPILIMUMAB [Suspect]
     Active Substance: IPILIMUMAB
     Indication: Metastatic renal cell carcinoma
     Dosage: 1 MILLIGRAM/KILOGRAM (50MG)
     Route: 065
     Dates: start: 20190607, end: 20190628
  2. NIVOLUMAB [Suspect]
     Active Substance: NIVOLUMAB
     Indication: Metastatic renal cell carcinoma
     Dosage: 240 MILLIGRAM
     Route: 065
     Dates: start: 20190607, end: 20190628
  3. AXITINIB [Suspect]
     Active Substance: AXITINIB
     Indication: Metastatic renal cell carcinoma
     Dosage: 5 MILLIGRAM/DAY
     Route: 065
     Dates: start: 201912
  4. AXITINIB [Suspect]
     Active Substance: AXITINIB
     Indication: Polymyositis
     Dosage: 6 MILLIGRAM/DAY
     Route: 065
     Dates: start: 202002
  5. AXITINIB [Suspect]
     Active Substance: AXITINIB
     Indication: Cancer pain
     Dosage: 60 MILLIGRAM
     Route: 065
     Dates: start: 20190723
  6. AXITINIB [Suspect]
     Active Substance: AXITINIB
     Dosage: 7 MILLIGRAM, QD
     Route: 065
     Dates: start: 201912
  7. AXITINIB [Suspect]
     Active Substance: AXITINIB
     Dosage: 400 MILLIGRAM, QD
     Route: 065
  8. AXITINIB [Suspect]
     Active Substance: AXITINIB
     Dosage: 40 MILLIGRAM, QD
     Route: 065
     Dates: start: 202006
  9. AXITINIB [Suspect]
     Active Substance: AXITINIB
     Dosage: UNK
     Route: 065
     Dates: start: 202007
  10. PAZOPANIB HYDROCHLORIDE [Suspect]
     Active Substance: PAZOPANIB HYDROCHLORIDE
     Indication: Metastatic renal cell carcinoma
     Dosage: 400 MILLIGRAM/DAY
     Route: 065
     Dates: start: 202005
  11. CABOZANTINIB [Suspect]
     Active Substance: CABOZANTINIB
     Indication: Metastatic renal cell carcinoma
     Dosage: 40 MILLIGRAM/DAY
     Route: 065
     Dates: start: 202006
  12. OXYCONTIN [Concomitant]
     Active Substance: OXYCODONE HYDROCHLORIDE
     Indication: Product used for unknown indication
     Dosage: 100-130MG/DAY ON-TIME USE
     Route: 048

REACTIONS (8)
  - Pneumonia aspiration [Fatal]
  - Polymyositis [Recovering/Resolving]
  - Hepatic function abnormal [Recovered/Resolved]
  - Malaise [Unknown]
  - Metastases to bone [Unknown]
  - Interstitial lung disease [Unknown]
  - Cancer pain [Recovering/Resolving]
  - Diplegia [Unknown]

NARRATIVE: CASE EVENT DATE: 20190701
